FAERS Safety Report 23383885 (Version 1)
Quarter: 2024Q1

REPORT INFORMATION
  Report Type: Spontaneous
  Country: US (occurrence: None)
  Receive Date: 20240109
  Receipt Date: 20240109
  Transmission Date: 20240409
  Serious: Yes (Hospitalization)
  Sender: FDA-Public Use
  Company Number: None

PATIENT
  Sex: Male

DRUGS (1)
  1. SAPROPTERIN [Suspect]
     Active Substance: SAPROPTERIN
     Indication: Phenylketonuria
     Dosage: FREQUENCY : DAILY;?
     Route: 048
     Dates: start: 202105

REACTIONS (1)
  - Hospitalisation [None]
